FAERS Safety Report 4844292-3 (Version None)
Quarter: 2005Q4

REPORT INFORMATION
  Report Type: 
  Country: None (occurrence: None)
  Receive Date: 20051202
  Receipt Date: 20051129
  Transmission Date: 20060501
  Serious: Yes (Death, Other)
  Sender: FDA-Public Use
  Company Number: US-MERCK-0511USA04483

PATIENT
  Age: 44 Year
  Sex: Male

DRUGS (2)
  1. VIOXX [Suspect]
     Indication: POST-TRAUMATIC PAIN
     Route: 048
     Dates: start: 20000426, end: 20030615
  2. VIOXX [Suspect]
     Indication: TENDONITIS
     Route: 048
     Dates: start: 20000426, end: 20030615

REACTIONS (2)
  - CORONARY ARTERY THROMBOSIS [None]
  - DEATH [None]
